FAERS Safety Report 7097003-8 (Version None)
Quarter: 2010Q4

REPORT INFORMATION
  Report Type: 
  Country: None (occurrence: None)
  Receive Date: 20101111
  Receipt Date: 20100507
  Transmission Date: 20110411
  Serious: No
  Sender: FDA-Public Use
  Company Number: US-KINGPHARMUSA00001-K201000572

PATIENT
  Age: 62 Year
  Sex: Female

DRUGS (2)
  1. EMBEDA [Suspect]
     Indication: HEPATIC PAIN
     Dosage: 20 MG, SINGLE
     Route: 048
     Dates: start: 20100401, end: 20100401
  2. DEMEROL [Concomitant]
     Dosage: UNK

REACTIONS (4)
  - MALAISE [None]
  - NAUSEA [None]
  - SOMNOLENCE [None]
  - VOMITING [None]
